FAERS Safety Report 10597025 (Version 1)
Quarter: 2014Q4

REPORT INFORMATION
  Report Type: Spontaneous
  Country: FR (occurrence: FR)
  Receive Date: 20141121
  Receipt Date: 20141121
  Transmission Date: 20150529
  Serious: Yes (Hospitalization)
  Sender: FDA-Public Use
  Company Number: FR-ROCHE-1491415

PATIENT
  Age: 59 Year
  Sex: Female
  Weight: 50 kg

DRUGS (6)
  1. YERVOY [Concomitant]
     Active Substance: IPILIMUMAB
     Dosage: 3 MG/KG
     Route: 065
     Dates: start: 20140915
  2. ZELBORAF [Suspect]
     Active Substance: VEMURAFENIB
     Dosage: 1 TABLET
     Route: 048
     Dates: start: 20140414
  3. ZELBORAF [Suspect]
     Active Substance: VEMURAFENIB
     Dosage: 3 TABLET
     Route: 048
     Dates: start: 20140516
  4. ZELBORAF [Suspect]
     Active Substance: VEMURAFENIB
     Dosage: 6 TABLETS
     Route: 048
     Dates: end: 20140904
  5. ZELBORAF [Suspect]
     Active Substance: VEMURAFENIB
     Indication: MALIGNANT MELANOMA
     Route: 048
     Dates: start: 20140326
  6. ZELBORAF [Suspect]
     Active Substance: VEMURAFENIB
     Dosage: 2 TABLET
     Route: 048
     Dates: start: 20140430

REACTIONS (3)
  - Liver injury [Recovered/Resolved]
  - Keratosis follicular [Recovered/Resolved]
  - Arthralgia [Recovered/Resolved]

NARRATIVE: CASE EVENT DATE: 201404
